FAERS Safety Report 17829380 (Version 1)
Quarter: 2020Q2

REPORT INFORMATION
  Report Type: Spontaneous
  Country: US (occurrence: US)
  Receive Date: 20200527
  Receipt Date: 20200527
  Transmission Date: 20200714
  Serious: Yes (Other)
  Sender: FDA-Public Use
  Company Number: US-ABBVIE-20K-163-3414482-00

PATIENT
  Age: 51 Year
  Sex: Male

DRUGS (4)
  1. AZACITIDINE. [Concomitant]
     Active Substance: AZACITIDINE
     Indication: MYELODYSPLASTIC SYNDROME
     Dates: start: 201904
  2. VENCLEXTA [Suspect]
     Active Substance: VENETOCLAX
     Indication: MYELODYSPLASTIC SYNDROME
     Route: 048
     Dates: start: 201904
  3. CYTARABINE. [Suspect]
     Active Substance: CYTARABINE
     Indication: PRODUCT USED FOR UNKNOWN INDICATION
     Route: 065
     Dates: start: 201804
  4. CLOFARABINE. [Suspect]
     Active Substance: CLOFARABINE
     Indication: PRODUCT USED FOR UNKNOWN INDICATION
     Route: 065
     Dates: start: 201804

REACTIONS (4)
  - Treatment failure [Unknown]
  - Myelodysplastic syndrome [Unknown]
  - Off label use [Unknown]
  - Acute myeloid leukaemia [Unknown]

NARRATIVE: CASE EVENT DATE: 20200516
